FAERS Safety Report 5200286-X (Version None)
Quarter: 2007Q1

REPORT INFORMATION
  Report Type: 
  Country: None (occurrence: None)
  Receive Date: 20070105
  Receipt Date: 20061227
  Transmission Date: 20070707
  Serious: Yes (Life-Threatening, Hospitalization, Other)
  Sender: FDA-Public Use
  Company Number: JP-PFIZER INC-2006123624

PATIENT
  Sex: Female
  Weight: 52 kg

DRUGS (6)
  1. SOLANAX [Suspect]
     Indication: PANIC DISORDER
     Dosage: TEXT:UNKNOWN
     Route: 048
     Dates: start: 20060101, end: 20060622
  2. ROHYPNOL [Suspect]
     Indication: PANIC DISORDER
     Dosage: TEXT:UNKNOWN
     Route: 048
  3. PAXIL [Suspect]
     Indication: PANIC DISORDER
     Dosage: TEXT:UNKNOWN
     Route: 048
  4. MEILAX [Suspect]
     Indication: PANIC DISORDER
     Dosage: TEXT:UNKNOWN
     Route: 048
  5. SEROQUEL [Suspect]
     Indication: PANIC DISORDER
     Dosage: TEXT:UNKNOWN
     Route: 048
     Dates: start: 20060101, end: 20060622
  6. VEGETAMIN A [Suspect]
     Indication: PANIC DISORDER
     Dosage: TEXT:UNKNOWN
     Route: 048
     Dates: start: 20060519, end: 20060622

REACTIONS (6)
  - DRUG HYPERSENSITIVITY [None]
  - ERYTHEMA [None]
  - LYMPHOCYTE STIMULATION TEST POSITIVE [None]
  - STEVENS-JOHNSON SYNDROME [None]
  - TOXIC EPIDERMAL NECROLYSIS [None]
  - VIRAL INFECTION [None]
